FAERS Safety Report 18614909 (Version 22)
Quarter: 2025Q4

REPORT INFORMATION
  Report Type: Report from Study
  Country: US (occurrence: US)
  Receive Date: 20201214
  Receipt Date: 20251218
  Transmission Date: 20260118
  Serious: Yes (Hospitalization, Other)
  Sender: TAKEDA
  Company Number: US-TAKEDA-US201933544

PATIENT
  Age: 71 Year
  Sex: Female

DRUGS (4)
  1. HUMAN IMMUNOGLOBULIN G [Suspect]
     Active Substance: HUMAN IMMUNOGLOBULIN G
     Indication: Primary immunodeficiency syndrome
     Dosage: UNK
  2. HUMAN IMMUNOGLOBULIN G [Suspect]
     Active Substance: HUMAN IMMUNOGLOBULIN G
     Indication: Immunodeficiency common variable
  3. GAMMAGARD S/D [Suspect]
     Active Substance: HUMAN IMMUNOGLOBULIN G
     Indication: Primary immunodeficiency syndrome
     Dosage: UNK
  4. GAMMAGARD S/D [Suspect]
     Active Substance: HUMAN IMMUNOGLOBULIN G
     Indication: Immunodeficiency common variable

REACTIONS (31)
  - Metastatic malignant melanoma [Unknown]
  - Clostridium difficile infection [Recovered/Resolved]
  - Intestinal obstruction [Recovered/Resolved]
  - Chronic kidney disease [Unknown]
  - Postoperative wound infection [Unknown]
  - Renal failure [Unknown]
  - Skin cancer [Recovering/Resolving]
  - Tibia fracture [Unknown]
  - Malignant melanoma [Unknown]
  - Impaired healing [Not Recovered/Not Resolved]
  - Blood immunoglobulin G abnormal [Unknown]
  - Neck pain [Unknown]
  - Renal function test abnormal [Unknown]
  - Thyroid hormones increased [Unknown]
  - Arthritis infective [Unknown]
  - Rotator cuff syndrome [Unknown]
  - Procedural pain [Unknown]
  - Walking aid user [Unknown]
  - Contusion [Unknown]
  - Fall [Unknown]
  - Pain [Unknown]
  - Fatigue [Unknown]
  - Myalgia [Unknown]
  - Scratch [Unknown]
  - Weight decreased [Unknown]
  - Lymphadenopathy [Unknown]
  - Muscle spasms [Unknown]
  - Hypersensitivity [Unknown]
  - Back pain [Unknown]
  - Flushing [Unknown]
  - Hand fracture [Unknown]

NARRATIVE: CASE EVENT DATE: 20240325
